FAERS Safety Report 5615836-9 (Version None)
Quarter: 2008Q1

REPORT INFORMATION
  Report Type: 
  Country: None (occurrence: None)
  Receive Date: 20080206
  Receipt Date: 20080125
  Transmission Date: 20080703
  Serious: Yes (Other)
  Sender: FDA-Public Use
  Company Number: US-ELI_LILLY_AND_COMPANY-US200801005810

PATIENT
  Age: 34 Year
  Sex: Male
  Weight: 95.238 kg

DRUGS (2)
  1. CYMBALTA [Suspect]
     Indication: NEURALGIA
     Dosage: 60 MG, UNK
     Dates: start: 20051222, end: 20071209
  2. CYMBALTA [Suspect]
     Dosage: 20 MG, DAILY (1/D)

REACTIONS (7)
  - ANXIETY [None]
  - CONFUSIONAL STATE [None]
  - DISTURBANCE IN ATTENTION [None]
  - DRUG WITHDRAWAL SYNDROME [None]
  - HERNIA REPAIR [None]
  - IRRITABILITY [None]
  - NAUSEA [None]
